FAERS Safety Report 17185370 (Version 1)
Quarter: 2019Q4

REPORT INFORMATION
  Report Type: Spontaneous
  Country: US (occurrence: US)
  Receive Date: 20191220
  Receipt Date: 20191220
  Transmission Date: 20200122
  Serious: No
  Sender: FDA-Public Use
  Company Number: US-THERAPEUTICSMD-2019TMD03518

PATIENT
  Age: 62 Year
  Sex: Female
  Weight: 52.15 kg

DRUGS (2)
  1. IMVEXXY [Suspect]
     Active Substance: ESTRADIOL
     Indication: VULVOVAGINAL DRYNESS
     Dosage: 4 ?G, EVERY 48 HOURS BEFORE BED
     Route: 067
     Dates: start: 20190911, end: 201909
  2. IMVEXXY [Suspect]
     Active Substance: ESTRADIOL
     Dosage: 4 ?G, 2X/WEEK BEFORE BED
     Route: 067
     Dates: start: 201909, end: 2019

REACTIONS (4)
  - Off label use [Recovered/Resolved]
  - Vaginal discharge [Recovered/Resolved]
  - Unevaluable event [Recovered/Resolved]
  - Product residue present [Recovered/Resolved]

NARRATIVE: CASE EVENT DATE: 201909
